FAERS Safety Report 11937629 (Version 1)
Quarter: 2016Q1

REPORT INFORMATION
  Report Type: Spontaneous
  Country: ES (occurrence: ES)
  Receive Date: 20160122
  Receipt Date: 20160122
  Transmission Date: 20160526
  Serious: Yes (Other)
  Sender: FDA-Public Use
  Company Number: ES-009507513-1601ESP007096

PATIENT
  Age: 72 Year
  Sex: Female
  Weight: 52 kg

DRUGS (2)
  1. VYTORIN [Suspect]
     Active Substance: EZETIMIBE\SIMVASTATIN
     Indication: HYPERCHOLESTEROLAEMIA
     Dosage: ONE DOSAGE FORM DAILY
     Route: 048
     Dates: start: 20150319, end: 20151023
  2. SECALIP [Suspect]
     Active Substance: FENOFIBRATE
     Indication: HYPERCHOLESTEROLAEMIA
     Dosage: 145 MG, ONCE DAILY
     Route: 048
     Dates: start: 20150319, end: 20151023

REACTIONS (4)
  - Drug interaction [Recovered/Resolved]
  - Myalgia [Recovered/Resolved]
  - Disorientation [Recovered/Resolved]
  - Pyrexia [Recovered/Resolved]

NARRATIVE: CASE EVENT DATE: 201510
